FAERS Safety Report 14352893 (Version 1)
Quarter: 2018Q1

REPORT INFORMATION
  Report Type: Spontaneous
  Country: ES (occurrence: ES)
  Receive Date: 20180104
  Receipt Date: 20180104
  Transmission Date: 20180509
  Serious: Yes (Other)
  Sender: FDA-Public Use
  Company Number: PHHY2018ES000767

PATIENT
  Age: 76 Year
  Sex: Male

DRUGS (2)
  1. PAZOPANIB [Suspect]
     Active Substance: PAZOPANIB
     Indication: ANGIOSARCOMA METASTATIC
     Dosage: 800 MG, QD
     Route: 048
     Dates: start: 20170424, end: 20170515
  2. PAZOPANIB [Suspect]
     Active Substance: PAZOPANIB
     Dosage: 400 MG, QD (TREATMENT INTERUPTION FOR 10 DAYS AND RESTARTED)
     Route: 048

REACTIONS (3)
  - Gastrointestinal toxicity [Recovered/Resolved]
  - Asthenia [Recovered/Resolved]
  - Thrombocytopenia [Recovered/Resolved]

NARRATIVE: CASE EVENT DATE: 20170515
